FAERS Safety Report 4308314-0 (Version None)
Quarter: 2004Q1

REPORT INFORMATION
  Report Type: 
  Country: None (occurrence: None)
  Receive Date: 20040301
  Receipt Date: 20031211
  Transmission Date: 20041129
  Serious: No
  Sender: FDA-Public Use
  Company Number: US-BRISTOL-MYERS SQUIBB COMPANY-12456786

PATIENT
  Age: 46 Year
  Sex: Female
  Weight: 100 kg

DRUGS (8)
  1. GLUCOPHAGE [Suspect]
     Indication: DIABETES MELLITUS
     Route: 048
  2. FLEXERIL [Suspect]
  3. HYDROCHLOROTHIAZIDE [Concomitant]
  4. LEXAPRO [Concomitant]
  5. DEPAKOTE [Concomitant]
  6. SEROQUEL [Concomitant]
  7. VICODIN [Concomitant]
  8. LOTENSIN [Concomitant]

REACTIONS (1)
  - ALOPECIA [None]
